FAERS Safety Report 5346761-9 (Version None)
Quarter: 2007Q2

REPORT INFORMATION
  Report Type: 
  Country: None (occurrence: None)
  Receive Date: 20070604
  Receipt Date: 20070523
  Transmission Date: 20071010
  Serious: Yes (Other)
  Sender: FDA-Public Use
  Company Number: 2007SP007533

PATIENT
  Age: 86 Year
  Sex: Male
  Weight: 68 kg

DRUGS (7)
  1. CLARITIN [Suspect]
     Indication: PRURITUS
     Dosage: 10 MG; PO
     Route: 048
     Dates: start: 20070327, end: 20070418
  2. NORVASC [Concomitant]
  3. DIOVAN [Concomitant]
  4. PIETENALE [Concomitant]
  5. ITOROL [Concomitant]
  6. SIGMART [Concomitant]
  7. POLARAMINE [Concomitant]

REACTIONS (3)
  - FACE OEDEMA [None]
  - OEDEMA PERIPHERAL [None]
  - WEIGHT INCREASED [None]
